FAERS Safety Report 6449005-X (Version None)
Quarter: 2009Q4

REPORT INFORMATION
  Report Type: 
  Country: None (occurrence: None)
  Receive Date: 20091120
  Receipt Date: 20091117
  Transmission Date: 20100525
  Serious: Yes (Hospitalization)
  Sender: FDA-Public Use
  Company Number: A0818212A

PATIENT
  Age: 58 Year
  Sex: Female

DRUGS (1)
  1. AVANDAMET [Suspect]
     Dosage: 8MG TWICE PER DAY
     Route: 065
     Dates: start: 19990101, end: 20040401

REACTIONS (1)
  - CARDIAC DISORDER [None]
